FAERS Safety Report 25983956 (Version 1)
Quarter: 2025Q4

REPORT INFORMATION
  Report Type: Spontaneous
  Country: US (occurrence: US)
  Receive Date: 20251031
  Receipt Date: 20251031
  Transmission Date: 20260118
  Serious: Yes (Disabling, Other)
  Sender: REGENERON
  Company Number: US-REGENERON PHARMACEUTICALS, INC.-2025-170531

PATIENT
  Sex: Female

DRUGS (1)
  1. EYLEA HD [Suspect]
     Active Substance: AFLIBERCEPT
     Indication: Neovascular age-related macular degeneration
     Dosage: UNK, EVERY 12 WEEKS, INTO BOTH EYES, (FORMULATION: HD VIAL)
     Route: 031

REACTIONS (2)
  - Blindness unilateral [Not Recovered/Not Resolved]
  - Non-infectious endophthalmitis [Unknown]

NARRATIVE: CASE EVENT DATE: 20251027
